FAERS Safety Report 14331418 (Version 4)
Quarter: 2024Q2

REPORT INFORMATION
  Report Type: Spontaneous
  Country: PT (occurrence: PT)
  Receive Date: 20171228
  Receipt Date: 20240424
  Transmission Date: 20240715
  Serious: Yes (Hospitalization, Disabling, Other)
  Sender: FDA-Public Use
  Company Number: PT-ACCORD-062425

PATIENT
  Age: 70 Year
  Sex: Female

DRUGS (2)
  1. CARBOPLATIN [Suspect]
     Active Substance: CARBOPLATIN
     Indication: Neuroendocrine tumour of the lung metastatic
  2. DOCETAXEL [Suspect]
     Active Substance: DOCETAXEL\DOCETAXEL ANHYDROUS
     Indication: Neuroendocrine tumour of the lung metastatic

REACTIONS (9)
  - Febrile neutropenia [Recovered/Resolved]
  - Pyelonephritis [Recovered/Resolved]
  - Panophthalmitis [Recovered/Resolved with Sequelae]
  - Off label use [Unknown]
  - Bacteraemia [Unknown]
  - Escherichia sepsis [Recovered/Resolved]
  - Amaurosis [Not Recovered/Not Resolved]
  - Immunosuppression [Recovered/Resolved]
  - Endophthalmitis [Unknown]
